FAERS Safety Report 10078868 (Version 3)
Quarter: 2014Q2

REPORT INFORMATION
  Report Type: Spontaneous
  Country: BR (occurrence: BR)
  Receive Date: 20140415
  Receipt Date: 20140514
  Transmission Date: 20141212
  Serious: Yes (Other)
  Sender: FDA-Public Use
  Company Number: BR-SA-2014SA035114

PATIENT
  Sex: Female
  Weight: 103 kg

DRUGS (12)
  1. LANTUS [Suspect]
     Indication: TYPE 2 DIABETES MELLITUS
     Route: 058
     Dates: start: 2008
  2. LANTUS [Suspect]
     Indication: TYPE 2 DIABETES MELLITUS
     Route: 058
  3. CLIKSTAR [Concomitant]
     Indication: DEVICE THERAPY
  4. ATORVASTATIN [Concomitant]
     Indication: BLOOD CHOLESTEROL
     Route: 048
  5. ALDACTONE [Concomitant]
     Indication: BLOOD PRESSURE
     Route: 048
  6. NATRILIX [Concomitant]
     Indication: BLOOD PRESSURE
     Route: 048
  7. HYDRALAZINE [Concomitant]
     Indication: BLOOD PRESSURE
     Route: 048
  8. SUSTRATE [Concomitant]
     Indication: BLOOD PRESSURE
     Route: 048
  9. PROPRANOLOL [Concomitant]
     Indication: BLOOD PRESSURE
     Route: 048
  10. LOSARTAN [Concomitant]
     Indication: BLOOD PRESSURE
     Route: 048
  11. METHYLDOPA [Concomitant]
     Indication: BLOOD PRESSURE
     Route: 048
  12. GLIFAGE [Concomitant]
     Indication: TYPE 2 DIABETES MELLITUS
     Route: 048

REACTIONS (13)
  - Blindness [Unknown]
  - Retinopathy [Not Recovered/Not Resolved]
  - Burning sensation [Not Recovered/Not Resolved]
  - Pruritus [Not Recovered/Not Resolved]
  - Erythema [Not Recovered/Not Resolved]
  - Eye pain [Unknown]
  - Cataract [Not Recovered/Not Resolved]
  - Eye haemorrhage [Unknown]
  - Dengue fever [Recovering/Resolving]
  - Pain [Unknown]
  - Eye pain [Unknown]
  - Eye discharge [Not Recovered/Not Resolved]
  - Off label use [Unknown]
